FAERS Safety Report 15451674 (Version 2)
Quarter: 2018Q4

REPORT INFORMATION
  Report Type: Spontaneous
  Country: US (occurrence: US)
  Receive Date: 20181001
  Receipt Date: 20181029
  Transmission Date: 20190204
  Serious: Yes (Hospitalization, Other)
  Sender: FDA-Public Use
  Company Number: US-AMGEN-USASP2018132977

PATIENT
  Age: 66 Year
  Sex: Female
  Weight: 47 kg

DRUGS (2)
  1. ANASTROZOLE. [Concomitant]
     Active Substance: ANASTROZOLE
     Indication: BLOOD OESTROGEN ABNORMAL
     Dosage: 1 DF (TABLET), QD
     Route: 048
  2. XGEVA [Suspect]
     Active Substance: DENOSUMAB
     Indication: PRODUCT USED FOR UNKNOWN INDICATION
     Dosage: UNK UNK, Q6WK
     Route: 065
     Dates: start: 20171226

REACTIONS (5)
  - Muscular weakness [Recovered/Resolved]
  - Off label use [Unknown]
  - Fall [Unknown]
  - Patella fracture [Recovering/Resolving]
  - Road traffic accident [Unknown]

NARRATIVE: CASE EVENT DATE: 2017
